FAERS Safety Report 20376634 (Version 1)
Quarter: 2022Q1

REPORT INFORMATION
  Report Type: Report from Study
  Country: US (occurrence: US)
  Receive Date: 20220125
  Receipt Date: 20220125
  Transmission Date: 20220423
  Serious: Yes (Other)
  Sender: FDA-Public Use
  Company Number: US-BAYER-2021A268713

PATIENT
  Age: 53 Year
  Sex: Female
  Weight: 130.16 kg

DRUGS (6)
  1. ADEMPAS [Suspect]
     Active Substance: RIOCIGUAT
     Indication: Pulmonary arterial hypertension
     Dosage: UNK
     Dates: start: 20200228
  2. ADEMPAS [Suspect]
     Active Substance: RIOCIGUAT
     Indication: Pulmonary arterial hypertension
     Dosage: 2.5 MG, TID
     Route: 048
  3. OFEV [Concomitant]
     Active Substance: NINTEDANIB
     Dosage: UNK UNK, BID
  4. UPTRAVI [Concomitant]
     Active Substance: SELEXIPAG
     Dosage: UNK
     Dates: end: 202112
  5. OPSUMIT [Concomitant]
     Active Substance: MACITENTAN
  6. REMODULIN [Concomitant]
     Active Substance: TREPROSTINIL
     Dosage: UNK
     Route: 058
     Dates: start: 202112

REACTIONS (6)
  - Emergency care [None]
  - Headache [None]
  - Abdominal discomfort [Recovering/Resolving]
  - Abdominal pain [Recovering/Resolving]
  - Oedema peripheral [None]
  - Abnormal weight gain [None]

NARRATIVE: CASE EVENT DATE: 20211212
